FAERS Safety Report 24107725 (Version 1)
Quarter: 2024Q3

REPORT INFORMATION
  Report Type: Spontaneous
  Country: US (occurrence: US)
  Receive Date: 20240718
  Receipt Date: 20240718
  Transmission Date: 20241017
  Serious: Yes (Hospitalization)
  Sender: Kilitch Healthcare
  Company Number: US-KHC-000030

PATIENT
  Age: 59 Year
  Sex: Female

DRUGS (2)
  1. POLYVINYL ALCOHOL [Suspect]
     Active Substance: POLYVINYL ALCOHOL
     Indication: Dry eye
     Dosage: 1 DROP IN EACH EYE 2 TIMES A DAY, 2 BOTTLES
     Route: 065
     Dates: start: 202308, end: 202311
  2. POLYVINYL ALCOHOL [Suspect]
     Active Substance: POLYVINYL ALCOHOL
     Indication: Dry eye
     Dosage: 1 DROP IN EACH EYE 2 TIMES A DAY, 2 BOTTLES
     Route: 065
     Dates: start: 202308, end: 202311

REACTIONS (4)
  - Vision blurred [Recovering/Resolving]
  - Vertigo [Recovering/Resolving]
  - Headache [Recovering/Resolving]
  - Recalled product [Unknown]

NARRATIVE: CASE EVENT DATE: 20230901
